FAERS Safety Report 7744197-4 (Version None)
Quarter: 2011Q3

REPORT INFORMATION
  Report Type: 
  Country: None (occurrence: None)
  Receive Date: 20110912
  Receipt Date: 20110906
  Transmission Date: 20111222
  Serious: Yes (Other)
  Sender: FDA-Public Use
  Company Number: NL-PFIZER INC-2011194773

PATIENT
  Age: 73 Year
  Sex: Female

DRUGS (3)
  1. DORZOLAMIDE [Suspect]
  2. XALATAN [Suspect]
     Dosage: 2 DROPS, 2X/DAY
  3. HYDROCHLOROTHIAZIDE/METOPROLOL SUCCINATE [Concomitant]
     Indication: BLOOD PRESSURE INCREASED
     Dosage: 12.75 MG, UNK

REACTIONS (3)
  - DRY MOUTH [None]
  - PALPITATIONS [None]
  - THROAT IRRITATION [None]
